FAERS Safety Report 15450133 (Version 2)
Quarter: 2019Q3

REPORT INFORMATION
  Report Type: Spontaneous
  Country: US (occurrence: US)
  Receive Date: 20181001
  Receipt Date: 20190719
  Transmission Date: 20191004
  Serious: No
  Sender: FDA-Public Use
  Company Number: US-PFIZER INC-2018393084

PATIENT
  Age: 9 Year
  Sex: Female

DRUGS (2)
  1. GENOTROPIN [Suspect]
     Active Substance: SOMATROPIN
     Dosage: 2 MG, DAILY
     Dates: start: 20160713
  2. GENOTROPIN [Suspect]
     Active Substance: SOMATROPIN
     Dosage: 1.8 MG, DAILY
     Route: 058
     Dates: start: 20160713

REACTIONS (10)
  - Headache [Unknown]
  - Mood swings [Unknown]
  - Pain in extremity [Unknown]
  - Breast tenderness [Unknown]
  - Arthralgia [Unknown]
  - Bone pain [Unknown]
  - Dizziness [Unknown]
  - Breast pain [Unknown]
  - Vaginal discharge [Unknown]
  - Growing pains [Unknown]
